FAERS Safety Report 9013495 (Version 1)
Quarter: 2012Q4

REPORT INFORMATION
  Report Type: Spontaneous
  Country: DK (occurrence: None)
  Receive Date: 20121231
  Receipt Date: 20121231
  Transmission Date: 20130627
  Serious: Yes (Other)
  Sender: FDA-Public Use
  Company Number: 2012MA014338

PATIENT
  Age: 47 Year
  Sex: Female

DRUGS (3)
  1. CETIRIZINE HCL TABLETS 10MG, OTC (AELLC) (CETIRIZINE) [Suspect]
     Indication: ASTHMA
     Route: 048
     Dates: start: 2011, end: 20121202
  2. ANTIBIOTICS NOS [Concomitant]
  3. INHALER [Concomitant]

REACTIONS (5)
  - Drug ineffective [None]
  - Pruritus generalised [None]
  - Urinary tract infection [None]
  - Drug withdrawal syndrome [None]
  - Weight decreased [None]
